FAERS Safety Report 9952923 (Version 1)
Quarter: 2014Q1

REPORT INFORMATION
  Report Type: Report from Study
  Country: US (occurrence: US)
  Receive Date: 20140304
  Receipt Date: 20140304
  Transmission Date: 20141002
  Serious: No
  Sender: FDA-Public Use
  Company Number: US-ABBVIE-13P-163-1079793-00

PATIENT
  Age: 18 Year
  Sex: Female

DRUGS (4)
  1. HUMIRA [Suspect]
     Indication: CROHN^S DISEASE
     Dates: start: 20130104, end: 20130417
  2. HUMIRA [Suspect]
     Dosage: EVERY FRIDAY
     Route: 058
     Dates: start: 20130417
  3. MVI [Concomitant]
     Indication: VITAMIN SUPPLEMENTATION
     Dosage: EVERY DAY
  4. BCP [Concomitant]
     Indication: CONTRACEPTION

REACTIONS (2)
  - Drug ineffective [Not Recovered/Not Resolved]
  - Crohn^s disease [Not Recovered/Not Resolved]
